FAERS Safety Report 9968080 (Version 1)
Quarter: 2014Q1

REPORT INFORMATION
  Report Type: Report from Study
  Country: US (occurrence: US)
  Receive Date: 20140306
  Receipt Date: 20140306
  Transmission Date: 20141002
  Serious: No
  Sender: FDA-Public Use
  Company Number: US-ABBVIE-13P-163-1142101-00

PATIENT
  Age: 28 Year
  Sex: Female

DRUGS (6)
  1. HUMIRA [Suspect]
     Indication: RHEUMATOID ARTHRITIS
     Dates: start: 201105
  2. PROBIOTICS [Concomitant]
     Indication: SUPPLEMENTATION THERAPY
  3. VITAMIN D [Concomitant]
     Indication: SUPPLEMENTATION THERAPY
  4. OMEPRAZOLE [Concomitant]
     Indication: GASTROOESOPHAGEAL REFLUX DISEASE
  5. METOPROLOL [Concomitant]
     Indication: HYPERTENSION
  6. EXFORGE [Concomitant]
     Indication: HYPERTENSION

REACTIONS (1)
  - Drug administered at inappropriate site [Not Recovered/Not Resolved]
